FAERS Safety Report 18383681 (Version 3)
Quarter: 2021Q1

REPORT INFORMATION
  Report Type: Spontaneous
  Country: US (occurrence: US)
  Receive Date: 20201014
  Receipt Date: 20210105
  Transmission Date: 20210419
  Serious: Yes (Other)
  Sender: FDA-Public Use
  Company Number: US-PFIZER INC-2020393344

PATIENT
  Age: 60 Year
  Sex: Male
  Weight: 89.8 kg

DRUGS (12)
  1. TURMERIC [CURCUMA LONGA] [Concomitant]
     Active Substance: HERBALS\TURMERIC
     Dosage: UNK
  2. DEXAMETHASONE. [Concomitant]
     Active Substance: DEXAMETHASONE
     Dosage: UNK
  3. PREGABALIN. [Concomitant]
     Active Substance: PREGABALIN
     Dosage: UNK
  4. SUTENT [Suspect]
     Active Substance: SUNITINIB MALATE
     Indication: PAPILLARY RENAL CELL CARCINOMA
     Dosage: 50 MG, CYCLIC (DAILY 28 DAYS THEN OFF 14 DAYS)
     Route: 048
     Dates: start: 202007
  5. SENNAE [Concomitant]
     Dosage: UNK
  6. CBD OIL [Concomitant]
     Active Substance: CANNABIDIOL\HERBALS
     Dosage: UNK
  7. OMEPRAZOLE. [Concomitant]
     Active Substance: OMEPRAZOLE
     Dosage: UNK
  8. TRAMADOL. [Concomitant]
     Active Substance: TRAMADOL
     Dosage: UNK
  9. FENBENDAZOLE [Concomitant]
     Active Substance: FENBENDAZOLE
     Dosage: UNK
  10. VITAMIN C [Concomitant]
     Active Substance: ASCORBIC ACID
     Dosage: UNK
  11. LORAZEPAM. [Concomitant]
     Active Substance: LORAZEPAM
     Dosage: UNK
  12. STOOL SOFTENER (DOCUSATE) [Concomitant]
     Active Substance: DOCUSATE
     Dosage: UNK

REACTIONS (10)
  - Arthralgia [Unknown]
  - Dyspepsia [Unknown]
  - Nausea [Unknown]
  - Nasal septum deviation [Unknown]
  - Upper respiratory tract congestion [Unknown]
  - Abdominal discomfort [Unknown]
  - Diarrhoea [Unknown]
  - Fatigue [Unknown]
  - Headache [Unknown]
  - Pain in jaw [Unknown]
